FAERS Safety Report 10921032 (Version 1)
Quarter: 2015Q1

REPORT INFORMATION
  Report Type: Spontaneous
  Country: ES (occurrence: None)
  Receive Date: 20150312
  Receipt Date: 20150312
  Transmission Date: 20150721
  Serious: Yes (Other)
  Sender: FDA-Public Use
  Company Number: 2269876

PATIENT
  Age: 63 Year

DRUGS (2)
  1. RALTITREXED DISODIUM [Suspect]
     Active Substance: RALTITREXED
     Indication: METASTASES TO LIVER
     Dates: start: 20120511
  2. OXALIPLATIN. [Suspect]
     Active Substance: OXALIPLATIN
     Indication: METASTASES TO LIVER
     Dates: start: 20120511

REACTIONS (9)
  - Diarrhoea [None]
  - Ascites [None]
  - Asthenia [None]
  - Hepatic cirrhosis [None]
  - Portal hypertension [None]
  - Toxicity to various agents [None]
  - Thrombocytopenia [None]
  - Paraesthesia [None]
  - Cholecystitis chronic [None]
